FAERS Safety Report 7777611-9 (Version None)
Quarter: 2011Q3

REPORT INFORMATION
  Report Type: 
  Country: None (occurrence: None)
  Receive Date: 20110926
  Receipt Date: 20110916
  Transmission Date: 20111222
  Serious: Yes (Hospitalization)
  Sender: FDA-Public Use
  Company Number: US-BAYER-2011-087517

PATIENT
  Sex: Female

DRUGS (2)
  1. YASMIN [Suspect]
     Dosage: UNK
     Dates: start: 20080401, end: 20100401
  2. YAZ [Suspect]
     Dosage: UNK
     Dates: start: 20080401, end: 20100401

REACTIONS (10)
  - DEEP VEIN THROMBOSIS [None]
  - COR PULMONALE ACUTE [None]
  - INJURY [None]
  - EMOTIONAL DISTRESS [None]
  - ABDOMINAL PAIN LOWER [None]
  - GENERAL PHYSICAL HEALTH DETERIORATION [None]
  - PULMONARY EMBOLISM [None]
  - PAIN [None]
  - ANXIETY [None]
  - FEAR [None]
